FAERS Safety Report 23817589 (Version 1)
Quarter: 2024Q2

REPORT INFORMATION
  Report Type: Spontaneous
  Country: CA (occurrence: CA)
  Receive Date: 20240505
  Receipt Date: 20240505
  Transmission Date: 20240715
  Serious: Yes (Other)
  Sender: FDA-Public Use
  Company Number: CA-BRISTOL-MYERS SQUIBB COMPANY-2024-067245

PATIENT
  Sex: Male

DRUGS (4)
  1. OPDIVO [Suspect]
     Active Substance: NIVOLUMAB
     Indication: Non-small cell lung cancer metastatic
     Dates: start: 202311
  2. YERVOY [Suspect]
     Active Substance: IPILIMUMAB
     Indication: Small cell lung cancer metastatic
     Dates: start: 202311
  3. CARBOPLATIN [Suspect]
     Active Substance: CARBOPLATIN
     Indication: Non-small cell lung cancer metastatic
     Dates: start: 202311
  4. TAXOL [Suspect]
     Active Substance: PACLITAXEL
     Indication: Non-small cell lung cancer metastatic
     Dates: start: 202311

REACTIONS (6)
  - Arthritis [Unknown]
  - Radiation associated pain [Unknown]
  - Metastases to central nervous system [Unknown]
  - Pulmonary embolism [Unknown]
  - Lymphadenopathy mediastinal [Unknown]
  - Condition aggravated [Unknown]

NARRATIVE: CASE EVENT DATE: 20240301
